FAERS Safety Report 9526689 (Version 1)
Quarter: 2013Q3

REPORT INFORMATION
  Report Type: Spontaneous
  Country: US (occurrence: US)
  Receive Date: 20130916
  Receipt Date: 20130916
  Transmission Date: 20140515
  Serious: No
  Sender: FDA-Public Use
  Company Number: US-009507513-1309USA004061

PATIENT
  Age: 32 Year
  Sex: Female

DRUGS (16)
  1. SINGULAIR [Suspect]
     Dosage: 10 MG, UNK
     Route: 048
  2. MONTELUKAST [Suspect]
     Indication: HYPERSENSITIVITY
     Dosage: 10 MG, QD (1 IN 1D)
     Route: 048
     Dates: start: 20130821, end: 20130826
  3. SYNTHROID [Concomitant]
     Indication: HYPOTHYROIDISM
     Dosage: 300 MICROGRAM, UNK
     Dates: start: 20130701
  4. LISINOPRIL [Concomitant]
     Dosage: 5 MG, QD (1IN 1D)
  5. FLUOXETINE [Concomitant]
     Indication: DEPRESSION
     Dosage: 50 MG, QD (1IN 1D)
     Dates: start: 2007
  6. IRON (UNSPECIFIED) [Concomitant]
     Indication: RED BLOOD CELL ABNORMALITY
     Dosage: 25 MG, QD (1IN 1D)
  7. VITAMINS (UNSPECIFIED) [Concomitant]
     Indication: ROUTINE HEALTH MAINTENANCE
     Dosage: QD (1 IN1 D)
  8. VITAMIN D (UNSPECIFIED) [Concomitant]
     Indication: ROUTINE HEALTH MAINTENANCE
     Dosage: 5000 IU, QD (1 IN 1D)
  9. ALBUTEROL [Concomitant]
     Indication: ASTHMA EXERCISE INDUCED
     Dosage: 2 DF, PRN PUFF
  10. FLUOCINONIDE [Concomitant]
     Indication: ECZEMA
     Dosage: 0.1 %, PRN FOR EAR
  11. LYSTEDA [Concomitant]
     Indication: MENORRHAGIA
     Dosage: 2 TABLET  3X DAY FIRST 2 DAYS OF CYCLE, TID 650 MG
  12. TRAMADOL HYDROCHLORIDE [Concomitant]
     Indication: DYSMENORRHOEA
     Dosage: 1/2 TO 2 TABS AS NEEDED (50MG)
  13. FLEXERIL [Concomitant]
     Indication: BRUXISM
     Dosage: 5 MG, QD ONE AT NIGHT AS NEEDED
  14. ALLEGRA [Concomitant]
     Indication: HYPERSENSITIVITY
     Dosage: 180 MG, QD
     Dates: start: 20121201
  15. QNASL [Concomitant]
     Indication: HYPERSENSITIVITY
     Dosage: 320 MICROGRAM, UNK
     Dates: start: 20121201
  16. ALLERGENIC EXTRACT [Concomitant]
     Indication: HYPERSENSITIVITY
     Dosage: 4 DF, EVERY 2-3 WEEKS

REACTIONS (4)
  - Chest discomfort [Unknown]
  - Dyspnoea [Unknown]
  - Chest discomfort [Recovered/Resolved]
  - Dyspnoea [Recovered/Resolved]
